FAERS Safety Report 19144266 (Version 1)
Quarter: 2021Q2

REPORT INFORMATION
  Report Type: Spontaneous
  Country: US (occurrence: US)
  Receive Date: 20210415
  Receipt Date: 20210415
  Transmission Date: 20210717
  Serious: Yes (Other)
  Sender: FDA-Public Use
  Company Number: None

PATIENT
  Age: 40 Year
  Sex: Male
  Weight: 29.71 kg

DRUGS (1)
  1. MIRCERA [Suspect]
     Active Substance: METHOXY POLYETHYLENE GLYCOL-EPOETIN BETA
     Indication: NEPHROGENIC ANAEMIA
     Dosage: ?OTHER ROUTE:INTRAVENOUS PUSH?
     Route: 042
     Dates: start: 20201016, end: 20201123

REACTIONS (5)
  - Seizure [None]
  - Dialysis [None]
  - Drug hypersensitivity [None]
  - Loss of consciousness [None]
  - Blood pressure increased [None]

NARRATIVE: CASE EVENT DATE: 20201123
